FAERS Safety Report 13479547 (Version 2)
Quarter: 2020Q3

REPORT INFORMATION
  Report Type: Report from Study
  Country: PL (occurrence: PL)
  Receive Date: 20170424
  Receipt Date: 20180612
  Transmission Date: 20201104
  Serious: Yes (Life-Threatening, Hospitalization, Other)
  Sender: FDA-Public Use
  Company Number: PL-BAXALTA-2017BLT003159

PATIENT
  Age: 36 Year
  Sex: Male

DRUGS (32)
  1. FACTOR VIII INHIBITOR BYPASSING FRACTION; BAXJECT II NF [Suspect]
     Active Substance: ANTI-INHIBITOR COAGULANT COMPLEX
     Indication: HAEMARTHROSIS
     Dosage: 10000 UNITS, 1X A DAY
     Route: 042
     Dates: start: 20160523, end: 20160523
  2. FACTOR VIII INHIBITOR BYPASSING FRACTION; BAXJECT II NF [Suspect]
     Active Substance: ANTI-INHIBITOR COAGULANT COMPLEX
     Dosage: 10000 UNITS, 1X A DAY
     Route: 042
     Dates: start: 20160608, end: 20160608
  3. ALDAN                              /00972402/ [Concomitant]
     Indication: HYPERTENSION
  4. NOVOSEVEN [Concomitant]
     Active Substance: COAGULATION FACTOR VIIA RECOMBINANT HUMAN
     Indication: CATHETER PLACEMENT
  5. NOVOSEVEN [Concomitant]
     Active Substance: COAGULATION FACTOR VIIA RECOMBINANT HUMAN
     Indication: BACK PAIN
  6. GLUCOSE [Concomitant]
     Active Substance: DEXTROSE
     Indication: NUTRITIONAL SUPPLEMENTATION
  7. HYDROCORTISON                      /00028601/ [Concomitant]
     Active Substance: HYDROCORTISONE
     Indication: PREMEDICATION
  8. EMICIZUMAB. [Suspect]
     Active Substance: EMICIZUMAB
     Indication: HAEMOPHILIA A WITH ANTI FACTOR VIII
     Dosage: MOST RECENT DOSE WAS 1.07 ML, 1X A WEEK
     Route: 058
     Dates: start: 20160421, end: 20160609
  9. DORETA [Concomitant]
     Active Substance: ACETAMINOPHEN\TRAMADOL HYDROCHLORIDE
     Indication: PAIN
  10. FUROSEMIDE. [Concomitant]
     Active Substance: FUROSEMIDE
     Indication: RENAL FAILURE
  11. ENCORTON                           /00044701/ [Concomitant]
     Active Substance: PREDNISONE
     Indication: IMMUNOSUPPRESSION
  12. PRAZOL                             /00661201/ [Concomitant]
     Indication: PROPHYLAXIS
  13. DORETA [Concomitant]
     Active Substance: ACETAMINOPHEN\TRAMADOL HYDROCHLORIDE
     Indication: HAEMOPHILIC ARTHROPATHY
  14. FACTOR VIII INHIBITOR BYPASSING FRACTION; BAXJECT II NF [Suspect]
     Active Substance: ANTI-INHIBITOR COAGULANT COMPLEX
     Indication: BACK PAIN
     Dosage: 10000 UNITS, 1X A DAY
     Route: 042
     Dates: start: 20160607, end: 20160607
  15. NORMAL SALINE [Concomitant]
     Active Substance: SODIUM CHLORIDE
     Indication: DEHYDRATION
  16. CLEMASTIN [Concomitant]
     Active Substance: CLEMASTINE
     Indication: PREMEDICATION
  17. SOLU?MEDROL [Concomitant]
     Active Substance: METHYLPREDNISOLONE SODIUM SUCCINATE
     Indication: IMMUNOSUPPRESSION
  18. BLOOD, WHOLE [Concomitant]
     Active Substance: WHOLE BLOOD
     Indication: ANAEMIA
  19. KALIPOZ [Concomitant]
     Active Substance: POTASSIUM CHLORIDE
     Indication: PRODUCT USED FOR UNKNOWN INDICATION
  20. AUGMENTIN [Concomitant]
     Active Substance: AMOXICILLIN\CLAVULANATE POTASSIUM
     Indication: PROPHYLAXIS
  21. MYDOCALM                           /00293002/ [Concomitant]
     Active Substance: TOLPERISONE HYDROCHLORIDE
     Indication: BACK PAIN
  22. FUROSEMIDE. [Concomitant]
     Active Substance: FUROSEMIDE
     Indication: OLIGURIA
  23. ESPUMISAN                          /06269601/ [Concomitant]
     Indication: FLATULENCE
  24. GLUCOSE W/POTASSIUM CHLORIDE [Concomitant]
     Indication: NUTRITIONAL SUPPLEMENTATION
  25. PERFALGAN [Concomitant]
     Active Substance: ACETAMINOPHEN
     Indication: ANALGESIC THERAPY
  26. LACIDOFIL [Concomitant]
     Active Substance: LACTOBACILLUS ACIDOPHILUS\LACTOBACILLUS RHAMNOSUS
     Indication: DYSBIOSIS
  27. FACTOR VIII INHIBITOR BYPASSING FRACTION; BAXJECT II NF [Suspect]
     Active Substance: ANTI-INHIBITOR COAGULANT COMPLEX
     Dosage: 10000 UNITS, 2X A DAY
     Route: 042
     Dates: start: 20160609, end: 20160609
  28. FACTOR VIIA, RECOMBINANT [Suspect]
     Active Substance: COAGULATION FACTOR VIIA RECOMBINANT HUMAN
     Indication: HAEMOLYTIC URAEMIC SYNDROME
     Dosage: 2 DOSAGE FORMS, TOTAL
     Route: 042
     Dates: start: 20160609, end: 20160609
  29. POLPRIL [Concomitant]
     Active Substance: RAMIPRIL
     Indication: HYPERTENSION
  30. PROCTOGLYVENOL [Concomitant]
     Indication: PROCTALGIA
  31. KETONAL                            /00321701/ [Concomitant]
     Active Substance: KETOPROFEN
     Indication: BACK PAIN
  32. FOLIC ACID. [Concomitant]
     Active Substance: FOLIC ACID
     Indication: ANAEMIA

REACTIONS (4)
  - Thrombotic thrombocytopenic purpura [Unknown]
  - Platelet count decreased [Unknown]
  - Haemorrhage [Unknown]
  - Thrombotic microangiopathy [Recovered/Resolved]

NARRATIVE: CASE EVENT DATE: 20160609
